FAERS Safety Report 11734519 (Version 1)
Quarter: 2015Q4

REPORT INFORMATION
  Report Type: Spontaneous
  Country: ES (occurrence: ES)
  Receive Date: 20151113
  Receipt Date: 20151113
  Transmission Date: 20160304
  Serious: Yes (Other)
  Sender: FDA-Public Use
  Company Number: ES-SA-2015SA180103

PATIENT
  Sex: Female
  Weight: 7.5 kg

DRUGS (1)
  1. THYMOGLOBULIN [Suspect]
     Active Substance: LAPINE T-LYMPHOCYTE IMMUNE GLOBULIN
     Indication: PROPHYLAXIS AGAINST GRAFT VERSUS HOST DISEASE
     Route: 065

REACTIONS (5)
  - Petechiae [Unknown]
  - Toxicity to various agents [Unknown]
  - Weight increased [Unknown]
  - Tachycardia [Unknown]
  - Hypoxia [Unknown]
